FAERS Safety Report 14959318 (Version 1)
Quarter: 2018Q2

REPORT INFORMATION
  Report Type: Spontaneous
  Country: US (occurrence: US)
  Receive Date: 20180510
  Receipt Date: 20180510
  Transmission Date: 20180711
  Serious: Yes (Hospitalization)
  Sender: FDA-Public Use
  Company Number: None

PATIENT
  Age: 87 Year
  Sex: Female

DRUGS (2)
  1. FEMARA 400/D [Concomitant]
     Dates: start: 20180418
  2. KISQALI FEMARA CO-PACK [Suspect]
     Active Substance: LETROZOLE\RIBOCICLIB
     Indication: BREAST CANCER FEMALE
     Route: 048

REACTIONS (3)
  - Nausea [None]
  - Ulcer [None]
  - Pruritus [None]

NARRATIVE: CASE EVENT DATE: 20180307
